FAERS Safety Report 10419024 (Version 1)
Quarter: 2014Q2

REPORT INFORMATION
  Report Type: Spontaneous
  Country: US (occurrence: None)
  Receive Date: 20140627
  Receipt Date: 20140627
  Transmission Date: 20141212
  Serious: No
  Sender: FDA-Public Use
  Company Number: CABO-14004113

PATIENT
  Sex: Female

DRUGS (1)
  1. COMETRIQ (CABOZANTINIB) CAPSULE [Suspect]
     Indication: MEDULLARY THYROID CANCER
     Route: 048
     Dates: start: 2013, end: 201401

REACTIONS (1)
  - Dyspnoea [None]
